FAERS Safety Report 19250809 (Version 1)
Quarter: 2021Q2

REPORT INFORMATION
  Report Type: Spontaneous
  Country: FR (occurrence: FR)
  Receive Date: 20210513
  Receipt Date: 20210513
  Transmission Date: 20210717
  Serious: Yes (Hospitalization)
  Sender: FDA-Public Use
  Company Number: FR-TEVA-2021-FR-1909899

PATIENT
  Age: 52 Year
  Sex: Male

DRUGS (2)
  1. DURVALUMAB. [Suspect]
     Active Substance: DURVALUMAB
     Indication: LUNG NEOPLASM MALIGNANT
     Dosage: 1 DF
     Dates: start: 202006
  2. AMOXICILLINE [Suspect]
     Active Substance: AMOXICILLIN
     Indication: LUNG NEOPLASM MALIGNANT
     Dosage: 7 WEEKS OF TREATMENT IN TOTAL, 1 DF
     Route: 048
     Dates: start: 202101

REACTIONS (1)
  - Hepatitis acute [Not Recovered/Not Resolved]
